FAERS Safety Report 9767907 (Version 1)
Quarter: 2013Q3

REPORT INFORMATION
  Report Type: Spontaneous
  Country: US (occurrence: None)
  Receive Date: 20130827
  Receipt Date: 20130827
  Transmission Date: 20140515
  Serious: Yes (Hospitalization)
  Sender: FDA-Public Use
  Company Number: 163-21880-13073048

PATIENT
  Age: 71 Year
  Sex: Male

DRUGS (9)
  1. REVLIMID [Suspect]
     Indication: PLASMA CELL MYELOMA
     Dosage: 5 MG, 21 IN 21 D, PO
     Route: 048
     Dates: start: 20130325
  2. ATIVAN (LORAZEPAM) (UNKNOWN) [Concomitant]
  3. HYDROCODONE/ACETAMINOPHEN (REMEDEINE) (UNKNOWN) [Concomitant]
  4. LISINOPRIL (LISINOPRIL) (UNKNOWN) [Concomitant]
  5. ACYCLOVIR (ACICLOVIR) (UNKNOWN) [Concomitant]
  6. LORAZEPAM (LORAZEPAM) (UNKNOWN) [Concomitant]
  7. METOPROLOL TARTRATE (METOPROLOL TARTRATE) (UNKNOWN) [Concomitant]
  8. OXYCODONE HCL (OXYCODONE HYDROCHLORIDE) (UNKNOWN) [Concomitant]
  9. RENA-VITE (NEPHROVITE) (UNKNOWN) [Concomitant]

REACTIONS (5)
  - Abdominal adhesions [None]
  - Nausea [None]
  - Vomiting [None]
  - Headache [None]
  - Adhesion [None]
